FAERS Safety Report 10294493 (Version 1)
Quarter: 2014Q3

REPORT INFORMATION
  Report Type: Other
  Country: TR (occurrence: TR)
  Receive Date: 20140710
  Receipt Date: 20140710
  Transmission Date: 20150326
  Serious: Yes (Life-Threatening, Other)
  Sender: FDA-Public Use
  Company Number: TR-ASTELLAS-2014US008087

PATIENT
  Age: 52 Year
  Sex: Male

DRUGS (2)
  1. AMPHOTERICIN B. [Suspect]
     Active Substance: AMPHOTERICIN B
     Dosage: UNK, UNKNOWN FREQ.
     Route: 042
     Dates: start: 201310, end: 201310
  2. AMPHOTERICIN B. [Suspect]
     Active Substance: AMPHOTERICIN B
     Indication: SYSTEMIC MYCOSIS
     Route: 042
     Dates: start: 20140521, end: 20140521

REACTIONS (4)
  - Myalgia [Recovered/Resolved]
  - Flushing [Recovered/Resolved]
  - Pruritus [Recovered/Resolved]
  - Respiratory distress [Recovered/Resolved]

NARRATIVE: CASE EVENT DATE: 20140521
